FAERS Safety Report 10244176 (Version 1)
Quarter: 2014Q2

REPORT INFORMATION
  Report Type: Spontaneous
  Country: US (occurrence: US)
  Receive Date: 20140618
  Receipt Date: 20140618
  Transmission Date: 20141212
  Serious: No
  Sender: FDA-Public Use
  Company Number: US-009507513-1406USA008392

PATIENT
  Age: 59 Year
  Sex: Male
  Weight: 104.31 kg

DRUGS (5)
  1. PEGINTRON [Suspect]
     Indication: HEPATITIS C
     Dosage: REDIPEN 150 MCG/0.5ML
     Dates: start: 20140410
  2. RIBASPHERE [Suspect]
  3. SOVALDI [Concomitant]
  4. METFORMIN [Concomitant]
  5. TRIBENZOR [Concomitant]

REACTIONS (3)
  - Feeling abnormal [Unknown]
  - Incorrect dose administered [Unknown]
  - Wrong technique in drug usage process [Unknown]
